FAERS Safety Report 6880615-1 (Version None)
Quarter: 2010Q3

REPORT INFORMATION
  Report Type: 
  Country: None (occurrence: None)
  Receive Date: 20100727
  Receipt Date: 20100129
  Transmission Date: 20110219
  Serious: No
  Sender: FDA-Public Use
  Company Number: A0839529A

PATIENT
  Sex: Male

DRUGS (2)
  1. ZANTAC [Suspect]
     Route: 065
  2. PLAVIX [Concomitant]

REACTIONS (2)
  - DRUG INEFFECTIVE [None]
  - GASTROOESOPHAGEAL REFLUX DISEASE [None]
